FAERS Safety Report 13919827 (Version 1)
Quarter: 2017Q3

REPORT INFORMATION
  Report Type: Spontaneous
  Country: US (occurrence: US)
  Receive Date: 20170830
  Receipt Date: 20170830
  Transmission Date: 20171127
  Serious: Yes (Other)
  Sender: FDA-Public Use
  Company Number: PHEH2017US027196

PATIENT
  Sex: Female

DRUGS (1)
  1. VOTRIENT [Suspect]
     Active Substance: PAZOPANIB HYDROCHLORIDE
     Indication: RENAL CANCER
     Dosage: 2 DF (1 HOUR BEFORE OR 2 HOURS AFTER A MEAL ON AN EMPTY STOMACH), QD
     Route: 048

REACTIONS (3)
  - Malignant neoplasm progression [Not Recovered/Not Resolved]
  - Renal cancer [Not Recovered/Not Resolved]
  - Drug ineffective [Unknown]
